FAERS Safety Report 7657179-8 (Version None)
Quarter: 2011Q3

REPORT INFORMATION
  Report Type: 
  Country: None (occurrence: None)
  Receive Date: 20110801
  Receipt Date: 20110715
  Transmission Date: 20111222
  Serious: Yes (Hospitalization, Other)
  Sender: FDA-Public Use
  Company Number: 2011MA008955

PATIENT
  Age: 16 Year
  Sex: Male

DRUGS (4)
  1. LANSOPRAZOLE [Concomitant]
  2. FLUOXETINE [Suspect]
     Indication: DEPRESSION
     Dosage: 10 MG
  3. DEXTROMETHORPHAN HYDROBROMIDE [Suspect]
     Indication: INTENTIONAL DRUG MISUSE
  4. LORATADINE [Concomitant]

REACTIONS (3)
  - SEROTONIN SYNDROME [None]
  - HEART RATE INCREASED [None]
  - BLOOD PRESSURE SYSTOLIC INCREASED [None]
